FAERS Safety Report 23080493 (Version 2)
Quarter: 2024Q1

REPORT INFORMATION
  Report Type: Spontaneous
  Country: US (occurrence: US)
  Receive Date: 20231018
  Receipt Date: 20240116
  Transmission Date: 20240410
  Serious: Yes (Death, Other)
  Sender: FDA-Public Use
  Company Number: US-BRISTOL-MYERS SQUIBB COMPANY-2023-148235

PATIENT
  Age: 75 Year
  Sex: Male
  Weight: 109 kg

DRUGS (4)
  1. OPDIVO [Suspect]
     Active Substance: NIVOLUMAB
     Indication: Brain neoplasm
     Dosage: FREQ : EVERY 3 WEEKS (EVERY 21 DAYS).?STRENGTH AND PRESENTATION OF THE AE : OPDIVO: 240 MG VIALS AND
     Route: 042
  2. YERVOY [Suspect]
     Active Substance: IPILIMUMAB
     Indication: Brain neoplasm
     Dosage: FREQ : EVERY 3 WEEKS (EVERY 21 DAYS).
     Route: 042
  3. INSULIN NOS [Concomitant]
     Active Substance: INSULIN NOS
     Indication: Product used for unknown indication
  4. KEPPRA [Concomitant]
     Active Substance: LEVETIRACETAM
     Indication: Product used for unknown indication

REACTIONS (2)
  - Death [Fatal]
  - Off label use [Unknown]
